FAERS Safety Report 10695788 (Version 1)
Quarter: 2015Q1

REPORT INFORMATION
  Report Type: Spontaneous
  Country: US (occurrence: None)
  Receive Date: 20150106
  Receipt Date: 20150106
  Transmission Date: 20150721
  Serious: Yes (Other)
  Sender: FDA-Public Use
  Company Number: None

PATIENT
  Age: 71 Year
  Sex: Female

DRUGS (1)
  1. XELODA [Suspect]
     Active Substance: CAPECITABINE

REACTIONS (4)
  - No therapeutic response [None]
  - Musculoskeletal pain [None]
  - Middle insomnia [None]
  - Feeling abnormal [None]

NARRATIVE: CASE EVENT DATE: 20150102
